FAERS Safety Report 8153132-9 (Version None)
Quarter: 2012Q1

REPORT INFORMATION
  Report Type: 
  Country: None (occurrence: None)
  Receive Date: 20120221
  Receipt Date: 20120213
  Transmission Date: 20120608
  Serious: Yes (Other)
  Sender: FDA-Public Use
  Company Number: US-JNJFOC-20120207702

PATIENT
  Sex: Male
  Weight: 104.33 kg

DRUGS (1)
  1. INVEGA [Suspect]
     Indication: PRODUCT USED FOR UNKNOWN INDICATION
     Route: 048
     Dates: start: 20090101

REACTIONS (10)
  - INCREASED APPETITE [None]
  - CARDIAC DISORDER [None]
  - UNEVALUABLE EVENT [None]
  - WEIGHT DECREASED [None]
  - BONE DISORDER [None]
  - DYSPNOEA [None]
  - DISORIENTATION [None]
  - WEIGHT INCREASED [None]
  - RENAL DISORDER [None]
  - DYSURIA [None]
